FAERS Safety Report 19258519 (Version 1)
Quarter: 2021Q2

REPORT INFORMATION
  Report Type: Spontaneous
  Country: BR (occurrence: BR)
  Receive Date: 20210514
  Receipt Date: 20210514
  Transmission Date: 20210717
  Serious: Yes (Death, Other)
  Sender: FDA-Public Use
  Company Number: BR-ASTRAZENECA-2021A425112

PATIENT
  Age: 46 Year
  Sex: Female

DRUGS (4)
  1. INSULIN [Concomitant]
     Active Substance: INSULIN NOS
     Indication: TYPE 2 DIABETES MELLITUS
     Dosage: IN THE MORNING AND IN THE EVENING
     Dates: start: 20210429
  2. FENOFIBRATE. [Concomitant]
     Active Substance: FENOFIBRATE
     Dates: start: 20210429
  3. ROSUVASTATIN. [Suspect]
     Active Substance: ROSUVASTATIN
     Dosage: 20.0MG UNKNOWN
     Route: 048
     Dates: start: 20210429
  4. XIGDUO XR [Suspect]
     Active Substance: DAPAGLIFLOZIN PROPANEDIOL\METFORMIN HYDROCHLORIDE
     Indication: TYPE 2 DIABETES MELLITUS
     Dosage: 5/1000 MG TWO TIMES A DAY
     Route: 048
     Dates: start: 20210429

REACTIONS (4)
  - Septic shock [Fatal]
  - Ketoacidosis [Fatal]
  - Off label use [Unknown]
  - Pancreatitis necrotising [Fatal]

NARRATIVE: CASE EVENT DATE: 20210429
